FAERS Safety Report 7412697-2 (Version None)
Quarter: 2011Q2

REPORT INFORMATION
  Report Type: 
  Country: None (occurrence: None)
  Receive Date: 20110404
  Receipt Date: 20110317
  Transmission Date: 20111010
  Serious: Yes (Other)
  Sender: FDA-Public Use
  Company Number: 030247

PATIENT
  Sex: Female

DRUGS (1)
  1. EQUASYM  (EQUASYM RETARD) [Suspect]
     Dosage: ORAL
     Route: 048
     Dates: start: 20110317

REACTIONS (4)
  - SOPOR [None]
  - INTENTIONAL OVERDOSE [None]
  - TACHYCARDIA [None]
  - DRUG ABUSE [None]
